FAERS Safety Report 17554378 (Version 2)
Quarter: 2020Q3

REPORT INFORMATION
  Report Type: Spontaneous
  Country: CN (occurrence: CN)
  Receive Date: 20200318
  Receipt Date: 20200716
  Transmission Date: 20201102
  Serious: Yes (Hospitalization, Other)
  Sender: FDA-Public Use
  Company Number: CN-ROCHE-2563129

PATIENT
  Age: 43 Year
  Sex: Female

DRUGS (13)
  1. HERCEPTIN [Suspect]
     Active Substance: TRASTUZUMAB
     Route: 065
     Dates: start: 20200301
  2. CAPECITABINE. [Concomitant]
     Active Substance: CAPECITABINE
     Route: 048
     Dates: start: 20191009
  3. HERCEPTIN [Suspect]
     Active Substance: TRASTUZUMAB
     Route: 065
     Dates: start: 20200301
  4. PERJETA [Suspect]
     Active Substance: PERTUZUMAB
     Indication: INVASIVE DUCTAL BREAST CARCINOMA
     Route: 065
     Dates: start: 20160930
  5. HERCEPTIN [Suspect]
     Active Substance: TRASTUZUMAB
     Indication: INVASIVE DUCTAL BREAST CARCINOMA
     Route: 065
     Dates: start: 20160930
  6. PERJETA [Suspect]
     Active Substance: PERTUZUMAB
     Route: 065
  7. CAPECITABINE. [Concomitant]
     Active Substance: CAPECITABINE
     Indication: INVASIVE DUCTAL BREAST CARCINOMA
     Route: 048
  8. HERCEPTIN [Suspect]
     Active Substance: TRASTUZUMAB
     Route: 065
  9. PERJETA [Suspect]
     Active Substance: PERTUZUMAB
     Route: 065
     Dates: start: 20190930
  10. NAB?PACLITAXEL [Concomitant]
     Active Substance: PACLITAXEL
     Indication: INVASIVE DUCTAL BREAST CARCINOMA
     Dates: start: 20200301
  11. PYROTINIB MALEATE. [Concomitant]
     Active Substance: PYROTINIB MALEATE
     Dates: start: 20191009
  12. DOCETAXEL. [Concomitant]
     Active Substance: DOCETAXEL
     Indication: INVASIVE DUCTAL BREAST CARCINOMA
     Dates: start: 20160930
  13. PYROTINIB MALEATE. [Concomitant]
     Active Substance: PYROTINIB MALEATE
     Indication: INVASIVE DUCTAL BREAST CARCINOMA
     Dates: start: 20160930

REACTIONS (11)
  - Pneumonitis [Unknown]
  - Spinal disorder [Unknown]
  - Pericardial effusion [Unknown]
  - Pleural effusion [Unknown]
  - Bone disorder [Unknown]
  - Superior vena cava syndrome [Unknown]
  - Hepatic mass [Unknown]
  - Lymphadenopathy [Unknown]
  - Dyspnoea [Unknown]
  - Gastrointestinal disorder [Unknown]
  - Lung hypoinflation [Unknown]

NARRATIVE: CASE EVENT DATE: 20200228
